FAERS Safety Report 9329144 (Version 1)
Quarter: 2013Q2

REPORT INFORMATION
  Report Type: Spontaneous
  Country: US (occurrence: US)
  Receive Date: 20130604
  Receipt Date: 20130604
  Transmission Date: 20140414
  Serious: No
  Sender: FDA-Public Use
  Company Number: US-SANOFI-AVENTIS-2013SA023018

PATIENT
  Age: 46 Year
  Sex: Female

DRUGS (2)
  1. SOLOSTAR [Suspect]
     Dosage: PRODUCT START DATE:- 1 WEEK AGO
  2. LANTUS SOLOSTAR [Suspect]
     Dosage: PRODUCT START DATE:- 1 WEEK AGO DOSE:13 UNIT(S)
     Route: 051

REACTIONS (3)
  - Injury associated with device [Unknown]
  - Pain in extremity [Unknown]
  - Blood glucose increased [Unknown]
